FAERS Safety Report 18586458 (Version 2)
Quarter: 2020Q4

REPORT INFORMATION
  Report Type: Spontaneous
  Country: IT (occurrence: IT)
  Receive Date: 20201207
  Receipt Date: 20201210
  Transmission Date: 20210114
  Serious: Yes (Death, Congenital Anomaly, Other)
  Sender: FDA-Public Use
  Company Number: IT-PFIZER INC-2020479347

PATIENT
  Sex: Female
  Weight: 5.54 kg

DRUGS (1)
  1. SULFASALAZINE. [Suspect]
     Active Substance: SULFASALAZINE
     Indication: COLITIS ULCERATIVE
     Dosage: 3 G, DAILY
     Route: 064
     Dates: start: 1979

REACTIONS (5)
  - Cleft lip [Unknown]
  - Maternal exposure during pregnancy [Fatal]
  - Teratogenicity [Fatal]
  - Cleft palate [Unknown]
  - Congenital hydrocephalus [Unknown]
